FAERS Safety Report 23856514 (Version 2)
Quarter: 2024Q3

REPORT INFORMATION
  Report Type: Spontaneous
  Country: BR (occurrence: BR)
  Receive Date: 20240515
  Receipt Date: 20240719
  Transmission Date: 20241017
  Serious: Yes (Other)
  Sender: ABBVIE
  Company Number: BR-ABBOTT-2024A-1381267

PATIENT
  Age: 9 Year
  Sex: Male
  Weight: 36 kg

DRUGS (1)
  1. DEPAKOTE [Suspect]
     Active Substance: DIVALPROEX SODIUM
     Indication: Attention deficit hyperactivity disorder
     Dosage: 250MG IN THE MORNING, 250MG AT LUNCH AND 125MG AT NIGHT,?DEPAKOTE SPRINKLE 125MG
     Route: 048

REACTIONS (6)
  - Anxiety [Unknown]
  - Salivary hypersecretion [Unknown]
  - Product use issue [Unknown]
  - Product use in unapproved indication [Unknown]
  - Intentional self-injury [Unknown]
  - Sensory disturbance [Unknown]
